FAERS Safety Report 6061638-1 (Version None)
Quarter: 2009Q1

REPORT INFORMATION
  Report Type: 
  Country: None (occurrence: None)
  Receive Date: 20090202
  Receipt Date: 20090128
  Transmission Date: 20090719
  Serious: Yes (Other)
  Sender: FDA-Public Use
  Company Number: A0765481A

PATIENT
  Age: 41 Year
  Sex: Female

DRUGS (4)
  1. ADVAIR DISKUS 100/50 [Suspect]
     Indication: ASTHMA
  2. STEROID [Suspect]
     Route: 042
  3. PREDNISONE [Suspect]
     Route: 048
  4. NO CONCURRENT MEDICATION [Concomitant]

REACTIONS (2)
  - CATARACT [None]
  - LIBIDO INCREASED [None]
